FAERS Safety Report 11652471 (Version 1)
Quarter: 2015Q4

REPORT INFORMATION
  Report Type: Spontaneous
  Country: BR (occurrence: BR)
  Receive Date: 20151022
  Receipt Date: 20151022
  Transmission Date: 20160304
  Serious: Yes (Other)
  Sender: FDA-Public Use
  Company Number: BR-ASTRAZENECA-2015SF01036

PATIENT
  Age: 63 Year
  Sex: Male
  Weight: 85 kg

DRUGS (6)
  1. METFORMIN [Suspect]
     Active Substance: METFORMIN HYDROCHLORIDE
     Route: 065
  2. ROSUVASTATIN [Suspect]
     Active Substance: ROSUVASTATIN
     Route: 048
  3. DAPAGLIFLOZIN+METFORMIN [Suspect]
     Active Substance: DAPAGLIFLOZIN PROPANEDIOL\METFORMIN HYDROCHLORIDE
     Dosage: 10 MG+ 2G + 30 MG
     Route: 065
  4. OLMESARTAN [Suspect]
     Active Substance: OLMESARTAN
  5. CARVEDILOL. [Suspect]
     Active Substance: CARVEDILOL
     Dosage: 20 MG + 12.5 MG DAILY
     Route: 065
  6. PIOGLITAZONE. [Suspect]
     Active Substance: PIOGLITAZONE

REACTIONS (1)
  - Acute myocardial infarction [Unknown]
